FAERS Safety Report 6615355-7 (Version None)
Quarter: 2010Q1

REPORT INFORMATION
  Report Type: 
  Country: None (occurrence: None)
  Receive Date: 20100305
  Receipt Date: 20090818
  Transmission Date: 20100710
  Serious: No
  Sender: FDA-Public Use
  Company Number: A0803555A

PATIENT

DRUGS (1)
  1. ROPINIROLE [Suspect]
     Indication: PARKINSONISM

REACTIONS (1)
  - HYPERHIDROSIS [None]
